FAERS Safety Report 4487378-8 (Version None)
Quarter: 2004Q4

REPORT INFORMATION
  Report Type: 
  Country: None (occurrence: None)
  Receive Date: 20041022
  Receipt Date: 20041013
  Transmission Date: 20050328
  Serious: Yes (Death, Life-Threatening, Disabling)
  Sender: FDA-Public Use
  Company Number: 2004-09-1235

PATIENT
  Age: 40 Year
  Sex: Male

DRUGS (2)
  1. INTERFERON ALFA-2B INJECTABLE [Suspect]
     Indication: CHRONIC MYELOID LEUKAEMIA
     Dosage: 5 MIU/M^2
     Dates: start: 19990122
  2. PREDNISOLONE [Concomitant]

REACTIONS (4)
  - ANAEMIA HAEMOLYTIC AUTOIMMUNE [None]
  - GENERAL PHYSICAL HEALTH DETERIORATION [None]
  - INTRAVASCULAR HAEMOLYSIS [None]
  - LEUKAEMIA RECURRENT [None]
